FAERS Safety Report 9452668 (Version 1)
Quarter: 2013Q3

REPORT INFORMATION
  Report Type: Spontaneous
  Country: US (occurrence: US)
  Receive Date: 20130812
  Receipt Date: 20130812
  Transmission Date: 20140515
  Serious: No
  Sender: FDA-Public Use
  Company Number: US-TEVA-424634USA

PATIENT
  Age: 32 Year
  Sex: Female

DRUGS (4)
  1. PARAGARD 380A [Suspect]
     Indication: CONTRACEPTION
     Route: 015
     Dates: start: 20130717, end: 20130719
  2. PARAGARD 380A [Suspect]
     Route: 015
     Dates: start: 20130806
  3. LIALDA [Concomitant]
  4. PRENATAL VITAMINS [Concomitant]
     Indication: VITAMIN SUPPLEMENTATION

REACTIONS (1)
  - Device expulsion [Recovered/Resolved]
